FAERS Safety Report 21522023 (Version 1)
Quarter: 2022Q4

REPORT INFORMATION
  Report Type: Spontaneous
  Country: US (occurrence: US)
  Receive Date: 20221028
  Receipt Date: 20221028
  Transmission Date: 20230112
  Serious: No
  Sender: FDA-Public Use
  Company Number: US-009507513-2210GEO005696

PATIENT
  Sex: Male

DRUGS (1)
  1. KEYTRUDA [Suspect]
     Active Substance: PEMBROLIZUMAB
     Indication: Metastatic malignant melanoma
     Dosage: 200 MG, EVERY 3 WEEKS
     Dates: start: 201710

REACTIONS (1)
  - Radiation skin injury [Recovering/Resolving]

NARRATIVE: CASE EVENT DATE: 20200701
